FAERS Safety Report 9907111 (Version 2)
Quarter: 2014Q1

REPORT INFORMATION
  Report Type: Spontaneous
  Country: FR (occurrence: FR)
  Receive Date: 20140218
  Receipt Date: 20140303
  Transmission Date: 20141002
  Serious: Yes (Death, Hospitalization, Other)
  Sender: FDA-Public Use
  Company Number: FR-PFIZER INC-2014039390

PATIENT
  Age: 83 Year
  Sex: Male

DRUGS (10)
  1. TAHOR [Suspect]
     Dosage: 10 MG, DAILY
     Route: 048
     Dates: start: 201210, end: 20140127
  2. FUCIDINE [Interacting]
     Dosage: 6 DF, DAILY
     Route: 048
     Dates: start: 20131223, end: 20140124
  3. LASILIX [Concomitant]
     Dosage: UNK
  4. TOPALGIC [Concomitant]
     Dosage: UNK
  5. FUMAFER [Concomitant]
     Dosage: UNK
  6. TRIATEC [Concomitant]
     Dosage: UNK
  7. OFLOCET [Concomitant]
     Dosage: UNK
  8. LANTUS [Concomitant]
     Dosage: UNK
  9. PRADAXA [Concomitant]
     Dosage: UNK
  10. KARDEGIC [Concomitant]
     Dosage: UNK

REACTIONS (5)
  - Rhabdomyolysis [Fatal]
  - Renal failure acute [Fatal]
  - Drug interaction [Unknown]
  - Pneumonia [Unknown]
  - Sepsis [Unknown]
